FAERS Safety Report 10178914 (Version 2)
Quarter: 2014Q2

REPORT INFORMATION
  Report Type: Spontaneous
  Country: US (occurrence: US)
  Receive Date: 20140519
  Receipt Date: 20140522
  Transmission Date: 20141212
  Serious: Yes (Hospitalization)
  Sender: FDA-Public Use
  Company Number: US-OTSUKA-US-2014-11019

PATIENT
  Sex: 0

DRUGS (1)
  1. ABILIFY MAINTENA [Suspect]
     Indication: SCHIZOPHRENIA
     Dosage: 400 MG MILLIGRAM(S), QM
     Route: 030
     Dates: start: 20131111

REACTIONS (3)
  - Psychiatric symptom [Unknown]
  - Hallucination, auditory [Unknown]
  - Suicidal ideation [Unknown]
